FAERS Safety Report 8106887 (Version 30)
Quarter: 2014Q1

REPORT INFORMATION
  Report Type: Report from Study
  Country: CA (occurrence: CA)
  Receive Date: 20110825
  Receipt Date: 20140131
  Transmission Date: 20141002
  Serious: Yes (Hospitalization, Other)
  Sender: FDA-Public Use
  Company Number: PHHY2010CA41577

PATIENT
  Age: 80 Year
  Sex: Female

DRUGS (10)
  1. SANDOSTATIN [Suspect]
     Indication: GASTRINOMA
     Dosage: 50 UG, UNK
     Route: 058
     Dates: start: 20100610
  2. SANDOSTATIN LAR [Suspect]
     Indication: GASTRINOMA
     Dosage: 20 MG, EVERY 4 WEEKS
     Route: 030
     Dates: start: 20100621
  3. SANDOSTATIN LAR [Suspect]
     Dosage: 20 MG, QMO
     Route: 030
  4. SANDOSTATIN LAR [Suspect]
     Dosage: 20 MG, QMO
     Route: 030
  5. SANDOSTATIN LAR [Suspect]
     Dosage: 20 MG, EVERY 4 WEEKS
     Route: 030
  6. ATIVAN [Concomitant]
     Dosage: UNK UKN, UNK
  7. LANSOPRAZOLE [Concomitant]
     Dosage: UNK UKN, UNK
  8. GRAVOL [Concomitant]
     Dosage: UNK UKN, UNK
  9. NORVASC [Concomitant]
     Dosage: UNK UKN, UNK
  10. NORVASC [Concomitant]
     Dosage: 3 DF, 2 TABLETS AM AND 1 TABLET PM

REACTIONS (22)
  - Thermal burn [Recovering/Resolving]
  - Liver disorder [Unknown]
  - Confusional state [Recovering/Resolving]
  - Micturition disorder [Unknown]
  - Drug abuse [Unknown]
  - Blood pressure increased [Unknown]
  - Gastroenteritis viral [Unknown]
  - Depressed mood [Unknown]
  - Arthritis [Unknown]
  - Pain [Unknown]
  - Poor quality sleep [Recovering/Resolving]
  - Influenza like illness [Recovering/Resolving]
  - Weight decreased [Unknown]
  - Insomnia [Recovering/Resolving]
  - Malaise [Unknown]
  - Abdominal pain upper [Recovering/Resolving]
  - Abdominal discomfort [Unknown]
  - Decreased appetite [Recovering/Resolving]
  - Asthenia [Unknown]
  - Heart rate increased [Unknown]
  - Vomiting [Unknown]
  - Heart rate irregular [Unknown]
